FAERS Safety Report 5324414-0 (Version None)
Quarter: 2007Q2

REPORT INFORMATION
  Report Type: 
  Country: None (occurrence: None)
  Receive Date: 20070514
  Receipt Date: 20070510
  Transmission Date: 20071010
  Serious: Yes (Other)
  Sender: FDA-Public Use
  Company Number: GB-MERCK-0705GBR00044

PATIENT
  Age: 85 Year
  Sex: Female

DRUGS (8)
  1. ZOCOR [Suspect]
     Indication: BLOOD CHOLESTEROL INCREASED
     Route: 048
  2. POMEGRANATE [Suspect]
     Route: 048
     Dates: start: 20070419, end: 20070422
  3. ISOSORBIDE MONONITRATE [Concomitant]
     Route: 065
  4. COZAAR [Concomitant]
     Route: 065
  5. METFORMIN [Concomitant]
     Route: 065
  6. ESTRIOL [Concomitant]
     Route: 065
  7. RANITIDINE [Concomitant]
     Route: 065
  8. SOLIFENACIN SUCCINATE [Concomitant]
     Route: 065

REACTIONS (2)
  - FOOD INTERACTION [None]
  - PAIN IN EXTREMITY [None]
